FAERS Safety Report 5939994-1 (Version None)
Quarter: 2008Q4

REPORT INFORMATION
  Report Type: 
  Country: None (occurrence: None)
  Receive Date: 20081104
  Receipt Date: 20081024
  Transmission Date: 20090506
  Serious: Yes (Hospitalization)
  Sender: FDA-Public Use
  Company Number: US-ROCHE-489408

PATIENT
  Age: 68 Year
  Sex: Female

DRUGS (2)
  1. BONIVA [Suspect]
     Indication: OSTEOPOROSIS
     Route: 042
  2. PERCOCET [Concomitant]
     Indication: PAIN

REACTIONS (15)
  - ARTHRITIS [None]
  - BODY HEIGHT DECREASED [None]
  - CYSTITIS [None]
  - FALL [None]
  - GRIP STRENGTH DECREASED [None]
  - HEADACHE [None]
  - HEART RATE IRREGULAR [None]
  - MEMORY IMPAIRMENT [None]
  - MOVEMENT DISORDER [None]
  - MUSCULOSKELETAL PAIN [None]
  - MYALGIA [None]
  - PAIN [None]
  - PAIN IN EXTREMITY [None]
  - PYREXIA [None]
  - VOMITING [None]
